FAERS Safety Report 4323504-9 (Version None)
Quarter: 2004Q1

REPORT INFORMATION
  Report Type: 
  Country: None (occurrence: None)
  Receive Date: 20040324
  Receipt Date: 20040324
  Transmission Date: 20041129
  Serious: Yes (Hospitalization)
  Sender: FDA-Public Use
  Company Number: None

PATIENT
  Age: 39 Year
  Sex: Female
  Weight: 59 kg

DRUGS (7)
  1. ROFECOXIB [Suspect]
     Indication: OSTEOMYELITIS
     Dosage: 12.5 MG BID ORAL
     Route: 048
     Dates: start: 20040310, end: 20040314
  2. ROFECOXIB [Suspect]
     Indication: PAIN
     Dosage: 12.5 MG BID ORAL
     Route: 048
     Dates: start: 20040310, end: 20040314
  3. MYCOPHENOLATE [Concomitant]
  4. NIFEDIPINE [Concomitant]
  5. PREDNISONE [Concomitant]
  6. CYCLOSPORINE [Concomitant]
  7. TRAMADOL HCL [Concomitant]

REACTIONS (2)
  - ANURIA [None]
  - BLOOD CREATININE INCREASED [None]
